FAERS Safety Report 17759315 (Version 1)
Quarter: 2020Q2

REPORT INFORMATION
  Report Type: Spontaneous
  Country: US (occurrence: US)
  Receive Date: 20200508
  Receipt Date: 20200508
  Transmission Date: 20200714
  Serious: Yes (Life-Threatening, Hospitalization)
  Sender: FDA-Public Use
  Company Number: US-HIKMA PHARMACEUTICALS USA INC.-US-H14001-20-02089

PATIENT
  Age: 16 Year
  Sex: Female

DRUGS (5)
  1. INCB018424 [Suspect]
     Active Substance: RUXOLITINIB
     Indication: ACUTE LYMPHOCYTIC LEUKAEMIA
     Route: 048
     Dates: start: 20190709
  2. VINCRISTINE [Suspect]
     Active Substance: VINCRISTINE
     Indication: ACUTE LYMPHOCYTIC LEUKAEMIA
     Route: 042
     Dates: start: 20200305
  3. METHOTREXATE. [Suspect]
     Active Substance: METHOTREXATE
     Indication: ACUTE LYMPHOCYTIC LEUKAEMIA
     Route: 042
     Dates: start: 20200305
  4. METHOTREXATE. [Suspect]
     Active Substance: METHOTREXATE
     Route: 037
     Dates: start: 20200305
  5. PEGASPARGASE [Suspect]
     Active Substance: PEGASPARGASE
     Indication: ACUTE LYMPHOCYTIC LEUKAEMIA
     Route: 042
     Dates: start: 20200306

REACTIONS (17)
  - Diarrhoea [Recovering/Resolving]
  - Enterococcal infection [Recovering/Resolving]
  - Pyrexia [Recovering/Resolving]
  - Pancytopenia [Recovering/Resolving]
  - Haemoglobin decreased [Recovering/Resolving]
  - Vomiting [Recovering/Resolving]
  - Clostridium difficile colitis [Recovering/Resolving]
  - Blood magnesium decreased [Recovering/Resolving]
  - Neutrophil count decreased [Recovering/Resolving]
  - Nausea [Recovering/Resolving]
  - Bacterial infection [Recovering/Resolving]
  - Enterobacter infection [Recovering/Resolving]
  - Clostridial infection [Recovering/Resolving]
  - Klebsiella infection [Recovering/Resolving]
  - Streptococcal infection [Recovering/Resolving]
  - Haemophilus infection [Recovering/Resolving]
  - Veillonella infection [Recovering/Resolving]

NARRATIVE: CASE EVENT DATE: 20200404
